FAERS Safety Report 5713792-6 (Version None)
Quarter: 2008Q2

REPORT INFORMATION
  Report Type: 
  Country: None (occurrence: None)
  Receive Date: 20080421
  Receipt Date: 20080415
  Transmission Date: 20081010
  Serious: Yes (Other)
  Sender: FDA-Public Use
  Company Number: 2008SP007112

PATIENT
  Age: 27 Year
  Sex: Female

DRUGS (3)
  1. INTRON A [Suspect]
     Indication: HEPATITIS C
     Dates: start: 19900101
  2. RIBAVIRIN [Suspect]
     Indication: HEPATITIS C
     Dosage: PO
     Route: 048
     Dates: start: 19900101
  3. RIBAVIRIN [Suspect]
     Indication: HEPATITIS C
     Dosage: PO
     Route: 048
     Dates: start: 20080205

REACTIONS (3)
  - DRUG INEFFECTIVE [None]
  - PSYCHOTIC DISORDER [None]
  - VIOLENCE-RELATED SYMPTOM [None]
